FAERS Safety Report 17675947 (Version 4)
Quarter: 2020Q2

REPORT INFORMATION
  Report Type: Spontaneous
  Country: US (occurrence: US)
  Receive Date: 20200416
  Receipt Date: 20200615
  Transmission Date: 20200714
  Serious: No
  Sender: FDA-Public Use
  Company Number: US-GLAXOSMITHKLINE-US2020AMR055751

PATIENT
  Age: 74 Year
  Sex: Female

DRUGS (2)
  1. ZEJULA [Suspect]
     Active Substance: NIRAPARIB
     Dosage: 100 MG, QD
  2. ZEJULA [Suspect]
     Active Substance: NIRAPARIB
     Indication: OVARIAN CANCER
     Dosage: 200 MG, QD
     Dates: start: 20200306

REACTIONS (11)
  - White blood cell count decreased [Not Recovered/Not Resolved]
  - Pain [Unknown]
  - Platelet count decreased [Unknown]
  - Palpitations [Unknown]
  - Off label use [Unknown]
  - Blood pressure decreased [Unknown]
  - Red blood cell count decreased [Not Recovered/Not Resolved]
  - Catheter site pain [Unknown]
  - Limb discomfort [Unknown]
  - Condition aggravated [Unknown]
  - Feeling abnormal [Unknown]

NARRATIVE: CASE EVENT DATE: 20200430
